FAERS Safety Report 15621817 (Version 1)
Quarter: 2018Q4

REPORT INFORMATION
  Report Type: Spontaneous
  Country: US (occurrence: US)
  Receive Date: 20181109
  Receipt Date: 20181109
  Transmission Date: 20190205
  Serious: Yes (Hospitalization)
  Sender: FDA-Public Use
  Company Number: None

PATIENT
  Age: 61 Year
  Sex: Female

DRUGS (7)
  1. MELOXICAM. [Concomitant]
     Active Substance: MELOXICAM
  2. ALLEGRA-D [Concomitant]
     Active Substance: FEXOFENADINE\PSEUDOEPHEDRINE
  3. SYNTHROID [Concomitant]
     Active Substance: LEVOTHYROXINE SODIUM
  4. LOSARTAN. [Concomitant]
     Active Substance: LOSARTAN
  5. FOSAMAX [Concomitant]
     Active Substance: ALENDRONATE SODIUM
  6. BUPROPION. [Concomitant]
     Active Substance: BUPROPION
  7. ENBREL [Suspect]
     Active Substance: ETANERCEPT
     Indication: PSORIATIC ARTHROPATHY
     Route: 058
     Dates: start: 201808, end: 201810

REACTIONS (1)
  - Hypersensitivity [None]

NARRATIVE: CASE EVENT DATE: 201810
